FAERS Safety Report 23160248 (Version 1)
Quarter: 2023Q4

REPORT INFORMATION
  Report Type: Spontaneous
  Country: JP (occurrence: JP)
  Receive Date: 20231108
  Receipt Date: 20231108
  Transmission Date: 20240110
  Serious: Yes (Other)
  Sender: FDA-Public Use
  Company Number: JP-VERICEL-JP-VCEL-23-000337

PATIENT
  Sex: Male

DRUGS (3)
  1. BROMELAINS [Suspect]
     Active Substance: BROMELAINS
     Indication: Thermal burn
     Dosage: 5 GRAM
     Route: 061
     Dates: start: 20231018, end: 20231018
  2. PENTAZOCINE [Concomitant]
     Active Substance: PENTAZOCINE
     Indication: Pain management
     Dosage: UNK
     Route: 042
     Dates: start: 20231018, end: 20231018
  3. ACETAMINOPHEN [Concomitant]
     Active Substance: ACETAMINOPHEN
     Indication: Pain management
     Dosage: UNK
     Route: 042
     Dates: start: 20231018, end: 20231018

REACTIONS (2)
  - Delirium [Not Recovered/Not Resolved]
  - Application site pain [Recovered/Resolved]

NARRATIVE: CASE EVENT DATE: 20231018
